FAERS Safety Report 6884519-X (Version None)
Quarter: 2010Q3

REPORT INFORMATION
  Report Type: 
  Country: None (occurrence: None)
  Receive Date: 20100729
  Receipt Date: 20070712
  Transmission Date: 20110219
  Serious: Yes (Other)
  Sender: FDA-Public Use
  Company Number: US-PFIZER INC-2007058242

PATIENT
  Sex: Male
  Weight: 147.9 kg

DRUGS (2)
  1. CELEBREX [Suspect]
     Indication: ARTHRITIS
     Dates: start: 20030109, end: 20031013
  2. BEXTRA [Suspect]
     Indication: ARTHRITIS
     Dates: start: 20030414, end: 20041221

REACTIONS (1)
  - HYPERTENSION [None]
